FAERS Safety Report 9398628 (Version 1)
Quarter: 2013Q3

REPORT INFORMATION
  Report Type: Spontaneous
  Country: US (occurrence: US)
  Receive Date: 20130712
  Receipt Date: 20130712
  Transmission Date: 20140515
  Serious: Yes (Other)
  Sender: FDA-Public Use
  Company Number: US-PFIZER INC-2013204546

PATIENT
  Age: 73 Year
  Sex: Female
  Weight: 45.35 kg

DRUGS (6)
  1. LIPITOR [Suspect]
     Indication: BLOOD CHOLESTEROL INCREASED
     Dosage: 20 MG, ONCE A DAY
     Route: 048
  2. LIPITOR [Suspect]
     Dosage: 20 MG, UNK
     Route: 048
  3. ACCUPRIL [Suspect]
     Indication: HYPERTENSION
     Dosage: UNK
  4. GLYBURIDE [Concomitant]
     Indication: DIABETES MELLITUS
     Dosage: UNK
  5. METFORMIN [Concomitant]
     Indication: DIABETES MELLITUS
     Dosage: UNK
  6. LETROZOLE [Concomitant]
     Indication: BREAST CANCER FEMALE
     Dosage: UNK

REACTIONS (2)
  - Haemorrhage [Unknown]
  - Platelet count abnormal [Unknown]
